FAERS Safety Report 5158338-9 (Version None)
Quarter: 2006Q4

REPORT INFORMATION
  Report Type: 
  Country: None (occurrence: None)
  Receive Date: 20061121
  Receipt Date: 20061121
  Transmission Date: 20070319
  Serious: Yes (Other)
  Sender: FDA-Public Use
  Company Number: None

PATIENT
  Age: 83 Year
  Sex: Female

DRUGS (10)
  1. ANGIOMAX [Suspect]
     Indication: MYOCARDIAL INFARCTION
     Dosage: ONCE IV BOLUS
     Route: 040
     Dates: start: 20050905, end: 20050905
  2. ASPIRIN [Concomitant]
  3. LOPRESSOR [Concomitant]
  4. PLAVIX [Concomitant]
  5. HYDROCHLOROTHIAZIDE [Concomitant]
  6. GLYBURIDE [Concomitant]
  7. GLUCOPHAGE [Concomitant]
  8. CAPOTEN [Concomitant]
  9. ETOPTIC EYE DROPS [Concomitant]
  10. LIPITOR [Concomitant]

REACTIONS (1)
  - POST PROCEDURAL HAEMATOMA [None]
